FAERS Safety Report 10974172 (Version 2)
Quarter: 2015Q2

REPORT INFORMATION
  Report Type: Spontaneous
  Country: US (occurrence: US)
  Receive Date: 20150401
  Receipt Date: 20150407
  Transmission Date: 20150821
  Serious: Yes (Death, Hospitalization)
  Sender: FDA-Public Use
  Company Number: US-UNITED THERAPEUTICS-UNT-2015-003375

PATIENT
  Sex: Male

DRUGS (2)
  1. REMODULIN [Suspect]
     Active Substance: TREPROSTINIL
     Dosage: 44 ML, QD
     Route: 041
     Dates: start: 20130529, end: 20150324
  2. REMODULIN [Suspect]
     Active Substance: TREPROSTINIL
     Indication: PULMONARY ARTERIAL HYPERTENSION
     Dosage: 0.056 ?G/KG, CONTINUING
     Route: 041
     Dates: start: 20130523, end: 20150324

REACTIONS (8)
  - Infection [Fatal]
  - Influenza [Fatal]
  - Pyrexia [Fatal]
  - Diarrhoea [Unknown]
  - Pneumonia [Fatal]
  - Abdominal pain upper [Fatal]
  - Urinary tract infection [Fatal]
  - Rash [Unknown]

NARRATIVE: CASE EVENT DATE: 20150324
